FAERS Safety Report 4583872-X (Version None)
Quarter: 2005Q1

REPORT INFORMATION
  Report Type: 
  Country: None (occurrence: None)
  Receive Date: 20050211
  Receipt Date: 20041124
  Transmission Date: 20050727
  Serious: Yes (Death, Other)
  Sender: FDA-Public Use
  Company Number: 04GER0256

PATIENT
  Sex: 0

DRUGS (1)
  1. AGGRASTAT [Suspect]
     Indication: ACUTE CORONARY SYNDROME

REACTIONS (5)
  - BASILAR ARTERY THROMBOSIS [None]
  - BRAIN STEM INFARCTION [None]
  - CEREBELLAR INFARCTION [None]
  - CEREBRAL INFARCTION [None]
  - SUBDURAL HAEMATOMA [None]
